FAERS Safety Report 9607678 (Version 1)
Quarter: 2013Q4

REPORT INFORMATION
  Report Type: Spontaneous
  Country: US (occurrence: US)
  Receive Date: 20131009
  Receipt Date: 20131009
  Transmission Date: 20140711
  Serious: No
  Sender: FDA-Public Use
  Company Number: US-SANOFI-AVENTIS-2013SA076812

PATIENT
  Age: 40 Year
  Sex: Female
  Weight: 87 kg

DRUGS (8)
  1. ARAVA [Suspect]
     Indication: PSORIATIC ARTHROPATHY
     Route: 065
  2. HUMIRA [Suspect]
     Dosage: 3-4 MONTHS
     Route: 065
  3. METHOTREXATE [Suspect]
  4. CELEBREX [Suspect]
     Indication: PSORIATIC ARTHROPATHY
  5. CORTICOSTEROID NOS [Suspect]
     Indication: PSORIASIS
  6. CORTICOSTEROID NOS [Suspect]
     Indication: PSORIATIC ARTHROPATHY
  7. FOLIC ACID [Concomitant]
  8. FLEXERIL [Concomitant]

REACTIONS (8)
  - Pain [Unknown]
  - Psoriasis [Unknown]
  - Arthralgia [Unknown]
  - Mobility decreased [Unknown]
  - Fatigue [Unknown]
  - Weight increased [Unknown]
  - Psoriasis [Unknown]
  - Inappropriate schedule of drug administration [Unknown]
